FAERS Safety Report 4800561-4 (Version None)
Quarter: 2005Q4

REPORT INFORMATION
  Report Type: 
  Country: None (occurrence: None)
  Receive Date: 20051017
  Receipt Date: 20050908
  Transmission Date: 20060501
  Serious: Yes (Death, Hospitalization)
  Sender: FDA-Public Use
  Company Number: AR-SANOFI-SYNTHELABO-F01200501832

PATIENT
  Sex: Male

DRUGS (3)
  1. OXALIPLATIN [Suspect]
     Indication: COLORECTAL CANCER METASTATIC
     Dosage: 210 MG 1 X PER 3 WEEK
     Route: 042
     Dates: start: 20050823, end: 20050823
  2. CAPECITABINE [Suspect]
     Dosage: 600 MG AM AND 450 MG PM, Q2W
     Route: 048
     Dates: start: 20050802, end: 20050823
  3. BEVACIZUMAB [Suspect]
     Route: 042
     Dates: start: 20050802

REACTIONS (1)
  - DEHYDRATION [None]
